FAERS Safety Report 6032861-7 (Version None)
Quarter: 2009Q1

REPORT INFORMATION
  Report Type: 
  Country: None (occurrence: None)
  Receive Date: 20090107
  Receipt Date: 20081230
  Transmission Date: 20090719
  Serious: Yes (Other)
  Sender: FDA-Public Use
  Company Number: JPI-P-005722

PATIENT
  Sex: Female

DRUGS (1)
  1. XYREM [Suspect]
     Indication: DRUG USE FOR UNKNOWN INDICATION
     Dosage: 6 GRM (3 GM, 2 IN 1 D), ORAL
     Route: 048
     Dates: start: 20041220, end: 20081201

REACTIONS (2)
  - BIPOLAR DISORDER [None]
  - PSYCHOTIC DISORDER [None]
